FAERS Safety Report 11349299 (Version 1)
Quarter: 2015Q3

REPORT INFORMATION
  Report Type: Spontaneous
  Country: US (occurrence: None)
  Receive Date: 20150630
  Receipt Date: 20150630
  Transmission Date: 20151125
  Serious: Yes (Other)
  Sender: FDA-Public Use
  Company Number: 2015_000604

PATIENT
  Sex: Male

DRUGS (2)
  1. ARIPIPRAZOLE (ARIPIPRAZOLE) TABLET, 2MG [Suspect]
     Active Substance: ARIPIPRAZOLE
     Indication: BIPOLAR DISORDER
     Route: 048
  2. ABILIFY MAINTENA [Suspect]
     Active Substance: ARIPIPRAZOLE
     Indication: BIPOLAR DISORDER
     Route: 028

REACTIONS (3)
  - Tardive dyskinesia [None]
  - Off label use [None]
  - Incorrect dose administered [None]
